FAERS Safety Report 21662816 (Version 1)
Quarter: 2022Q4

REPORT INFORMATION
  Report Type: Spontaneous
  Country: CN (occurrence: CN)
  Receive Date: 20221130
  Receipt Date: 20221130
  Transmission Date: 20230113
  Serious: Yes (Hospitalization)
  Sender: FDA-Public Use
  Company Number: CN-BAYER-2022A163693

PATIENT
  Age: 55 Year
  Sex: Male
  Weight: 77 kg

DRUGS (2)
  1. GLUCOBAY [Interacting]
     Active Substance: ACARBOSE
     Indication: Type 2 diabetes mellitus
     Dosage: 0.1 G, TID
     Route: 048
     Dates: start: 20220101, end: 20221109
  2. METFORMIN HYDROCHLORIDE [Interacting]
     Active Substance: METFORMIN HYDROCHLORIDE
     Indication: Type 2 diabetes mellitus
     Dosage: 0.5 G, BID
     Route: 048
     Dates: start: 20220101, end: 20221109

REACTIONS (4)
  - Hypoglycaemia [Recovering/Resolving]
  - Slow response to stimuli [None]
  - Confusional state [None]
  - Vomiting [None]

NARRATIVE: CASE EVENT DATE: 20221109
